FAERS Safety Report 7530903-0 (Version None)
Quarter: 2011Q2

REPORT INFORMATION
  Report Type: 
  Country: None (occurrence: None)
  Receive Date: 20110608
  Receipt Date: 20110531
  Transmission Date: 20111010
  Serious: Yes (Other)
  Sender: FDA-Public Use
  Company Number: US-BIOGENIDEC-2011BI020339

PATIENT
  Age: 40 Year
  Sex: Male

DRUGS (2)
  1. AVONEX [Suspect]
     Indication: MULTIPLE SCLEROSIS
     Route: 030
     Dates: start: 20030615, end: 20060615
  2. AVONEX [Suspect]
     Route: 030
     Dates: start: 20000615, end: 20010615

REACTIONS (1)
  - DRUG DELIVERY DEVICE IMPLANTATION [None]
